FAERS Safety Report 17535085 (Version 1)
Quarter: 2020Q1

REPORT INFORMATION
  Report Type: Spontaneous
  Country: UZ (occurrence: UZ)
  Receive Date: 20200312
  Receipt Date: 20200312
  Transmission Date: 20200409
  Serious: Yes (Other)
  Sender: FDA-Public Use
  Company Number: UZ-VALIDUS PHARMACEUTICALS LLC-UZ-2020VAL000180

PATIENT

DRUGS (1)
  1. TRENTAL [Suspect]
     Active Substance: PENTOXIFYLLINE
     Indication: VARICOSE VEIN
     Dosage: UNK
     Route: 042
     Dates: start: 20200228

REACTIONS (2)
  - Off label use [Unknown]
  - Brain oedema [Unknown]

NARRATIVE: CASE EVENT DATE: 20200228
